FAERS Safety Report 6526830-8 (Version None)
Quarter: 2010Q1

REPORT INFORMATION
  Report Type: 
  Country: None (occurrence: None)
  Receive Date: 20100105
  Receipt Date: 20091224
  Transmission Date: 20100710
  Serious: Yes (Death, Hospitalization)
  Sender: FDA-Public Use
  Company Number: TR-ELI_LILLY_AND_COMPANY-TR200912005706

PATIENT
  Sex: Female

DRUGS (2)
  1. CYMBALTA [Suspect]
     Indication: MAJOR DEPRESSION
     Dosage: 60 MG, DAILY (1/D)
     Route: 048
     Dates: start: 20090401, end: 20091001
  2. EDRONAX [Concomitant]
     Indication: MAJOR DEPRESSION
     Dosage: UNK UNK, 2/D
     Route: 048

REACTIONS (2)
  - MANIA [None]
  - PNEUMONIA [None]
